FAERS Safety Report 24825292 (Version 1)
Quarter: 2025Q1

REPORT INFORMATION
  Report Type: Report from Study
  Country: US (occurrence: US)
  Receive Date: 20250109
  Receipt Date: 20250109
  Transmission Date: 20250408
  Serious: Yes (Other)
  Sender: ABBVIE
  Company Number: US-ABBVIE-6069376

PATIENT
  Age: 48 Year
  Sex: Male

DRUGS (3)
  1. RINVOQ [Suspect]
     Active Substance: UPADACITINIB
     Indication: Colitis ulcerative
     Dosage: DAILY FOR 8 WEEKS?LAST ADMIN DATE AS 2024
     Route: 048
     Dates: start: 202409
  2. RINVOQ [Suspect]
     Active Substance: UPADACITINIB
     Indication: Colitis ulcerative
     Dosage: DAILY?STRENGTH:15 MG?FIRST ADMIN DATE 2024
     Route: 048
     Dates: end: 202412
  3. OCALIVA [Concomitant]
     Active Substance: OBETICHOLIC ACID
     Indication: Product used for unknown indication

REACTIONS (7)
  - Drug-induced liver injury [Unknown]
  - Fatigue [Unknown]
  - Chills [Unknown]
  - Pruritus [Unknown]
  - Pyrexia [Unknown]
  - Hepatic enzyme increased [Unknown]
  - Blood cholesterol increased [Unknown]

NARRATIVE: CASE EVENT DATE: 20241201
